FAERS Safety Report 6171186-6 (Version None)
Quarter: 2009Q2

REPORT INFORMATION
  Report Type: 
  Country: None (occurrence: None)
  Receive Date: 20090429
  Receipt Date: 20090423
  Transmission Date: 20091009
  Serious: No
  Sender: FDA-Public Use
  Company Number: US-BIOGENIDEC-2009BI006700

PATIENT
  Age: 45 Year
  Sex: Female

DRUGS (2)
  1. TYSABRI [Suspect]
     Indication: MULTIPLE SCLEROSIS
     Route: 042
     Dates: start: 20080902
  2. PREDNISONE [Concomitant]
     Indication: DRUG USE FOR UNKNOWN INDICATION

REACTIONS (8)
  - DROOLING [None]
  - GAIT DISTURBANCE [None]
  - HYPOAESTHESIA [None]
  - LOWER RESPIRATORY TRACT INFECTION BACTERIAL [None]
  - MUSCLE TWITCHING [None]
  - PAIN [None]
  - PARAESTHESIA [None]
  - PNEUMONIA MYCOPLASMAL [None]
